FAERS Safety Report 21083877 (Version 2)
Quarter: 2022Q3

REPORT INFORMATION
  Report Type: Spontaneous
  Country: ES (occurrence: ES)
  Receive Date: 20220714
  Receipt Date: 20220728
  Transmission Date: 20221027
  Serious: Yes (Life-Threatening, Hospitalization)
  Sender: FDA-Public Use
  Company Number: ES-TEVA-2022-ES-2053846

PATIENT
  Age: 66 Year
  Sex: Female

DRUGS (8)
  1. PACLITAXEL [Suspect]
     Active Substance: PACLITAXEL
     Indication: Ovarian cancer
     Route: 050
  2. PACLITAXEL [Suspect]
     Active Substance: PACLITAXEL
     Indication: Fallopian tube cancer
  3. GADOTERIDOL [Suspect]
     Active Substance: GADOTERIDOL
     Indication: Magnetic resonance imaging
     Route: 065
  4. BEVACIZUMAB [Suspect]
     Active Substance: BEVACIZUMAB
     Indication: Ovarian cancer
     Route: 050
  5. BEVACIZUMAB [Suspect]
     Active Substance: BEVACIZUMAB
     Indication: Fallopian tube cancer
  6. PREDNISONE [Concomitant]
     Active Substance: PREDNISONE
     Indication: Ankylosing spondylitis
     Route: 065
  7. CARBOPLATIN [Concomitant]
     Active Substance: CARBOPLATIN
     Indication: Ovarian cancer
     Route: 065
  8. CARBOPLATIN [Concomitant]
     Active Substance: CARBOPLATIN
     Indication: Fallopian tube cancer

REACTIONS (13)
  - Drug reaction with eosinophilia and systemic symptoms [Recovering/Resolving]
  - Anaphylactic reaction [Recovering/Resolving]
  - Anaphylactic shock [Recovering/Resolving]
  - Respiratory disorder [Recovering/Resolving]
  - Skin disorder [Recovering/Resolving]
  - Hypotension [Recovering/Resolving]
  - Gastrointestinal disorder [Recovering/Resolving]
  - Erythema [Recovering/Resolving]
  - Abdominal pain [Recovering/Resolving]
  - Palmar erythema [Recovering/Resolving]
  - Nausea [Recovering/Resolving]
  - Vomiting [Recovering/Resolving]
  - Dyspnoea [Recovering/Resolving]
